FAERS Safety Report 14565002 (Version 2)
Quarter: 2018Q1

REPORT INFORMATION
  Report Type: Report from Study
  Country: CN (occurrence: CN)
  Receive Date: 20180223
  Receipt Date: 20180226
  Transmission Date: 20180509
  Serious: Yes (Hospitalization, Other)
  Sender: FDA-Public Use
  Company Number: CN-ASTRAZENECA-2018SE14466

PATIENT
  Age: 554 Month
  Sex: Female

DRUGS (1)
  1. FASLODEX [Suspect]
     Active Substance: FULVESTRANT
     Indication: BREAST CANCER FEMALE
     Route: 030
     Dates: start: 20170811

REACTIONS (7)
  - Metastases to central nervous system [Unknown]
  - Movement disorder [Recovering/Resolving]
  - Headache [Unknown]
  - Decreased appetite [Unknown]
  - Anaemia [Not Recovered/Not Resolved]
  - Immunodeficiency [Recovering/Resolving]
  - Gait disturbance [Recovering/Resolving]

NARRATIVE: CASE EVENT DATE: 201704
